FAERS Safety Report 21772640 (Version 3)
Quarter: 2023Q1

REPORT INFORMATION
  Report Type: Spontaneous
  Country: US (occurrence: US)
  Receive Date: 20221223
  Receipt Date: 20230222
  Transmission Date: 20230418
  Serious: No
  Sender: FDA-Public Use
  Company Number: US-BRISTOL-MYERS SQUIBB COMPANY-2022-158026

PATIENT
  Age: 41 Year
  Sex: Female

DRUGS (2)
  1. ZEPOSIA [Suspect]
     Active Substance: OZANIMOD HYDROCHLORIDE
     Indication: Colitis ulcerative
     Dosage: DAILY
     Route: 048
     Dates: start: 202211
  2. ZEPOSIA [Suspect]
     Active Substance: OZANIMOD HYDROCHLORIDE
     Dosage: FREQ: DAILY
     Route: 048
     Dates: start: 202212

REACTIONS (3)
  - Fatigue [Unknown]
  - Headache [Unknown]
  - Vision blurred [Unknown]
